FAERS Safety Report 10185939 (Version 3)
Quarter: 2014Q2

REPORT INFORMATION
  Report Type: Spontaneous
  Country: JP (occurrence: JP)
  Receive Date: 20140521
  Receipt Date: 20140620
  Transmission Date: 20141212
  Serious: Yes (Death, Hospitalization)
  Sender: FDA-Public Use
  Company Number: PHHY2014JP044266

PATIENT
  Age: 78 Year
  Sex: Female

DRUGS (11)
  1. NEORAL [Suspect]
     Indication: INTERSTITIAL LUNG DISEASE
     Dosage: UNK
     Route: 048
  2. NEORAL [Suspect]
     Indication: OFF LABEL USE
  3. PREDONINE [Concomitant]
     Dosage: 5 MG, UNK
     Route: 048
     Dates: end: 20140418
  4. RABEPRAZOLE NA [Concomitant]
     Dosage: 10 MG, UNK
     Route: 048
     Dates: end: 20140418
  5. BONALON [Concomitant]
     Dosage: 35 MG, UNK
     Route: 048
     Dates: end: 20140418
  6. BACTRAMIN [Concomitant]
     Dosage: UNK UKN, UNK
     Route: 048
  7. METHYCOBAL [Concomitant]
     Dosage: 500 UG, UNK
     Route: 048
  8. BIOFERMIN R [Concomitant]
     Dosage: UNK UKN, UNK
     Route: 048
  9. XALATAN [Concomitant]
     Dosage: INTRAOSSEOUS (IO) INFUSION
  10. COSOPT [Concomitant]
     Dosage: INTRAOSSEOUS (IO) INFUSION
  11. VOLTAREN//DICLOFENAC SODIUM [Concomitant]
     Dosage: UNK UKN, UNK
     Route: 054

REACTIONS (3)
  - Interstitial lung disease [Fatal]
  - Decreased appetite [Unknown]
  - Oral administration complication [Unknown]
